FAERS Safety Report 9530733 (Version 1)
Quarter: 2013Q4

REPORT INFORMATION
  Report Type: Spontaneous
  Country: US (occurrence: None)
  Receive Date: 20130916
  Receipt Date: 20130916
  Transmission Date: 20140711
  Serious: Yes (Hospitalization)
  Sender: FDA-Public Use
  Company Number: None

PATIENT
  Age: 75 Year
  Sex: Female
  Weight: 61.41 kg

DRUGS (16)
  1. GEMCITABINE Q14 [Suspect]
     Indication: PANCREATIC CARCINOMA METASTATIC
     Dosage: 1600MG  IV
     Route: 042
     Dates: start: 20130529, end: 20130821
  2. CISPLATIN Q14 [Suspect]
     Indication: PANCREATIC CARCINOMA
     Dosage: 24MG  IV
     Route: 042
     Dates: start: 20130529, end: 20130821
  3. 5-FLUOROURACIL Q14 [Suspect]
     Indication: PANCREATIC CARCINOMA
     Dosage: 3840MG  IV
     Route: 042
     Dates: start: 20130529, end: 20130821
  4. 0.9% NACL [Concomitant]
  5. FENTANYL [Concomitant]
  6. HEPARIN FLUSH [Concomitant]
  7. CREON [Concomitant]
  8. MEGACE [Concomitant]
  9. MS CONTIN [Concomitant]
  10. PRILOSEC [Concomitant]
  11. ZOFRAN [Concomitant]
  12. OXYCODONE [Concomitant]
  13. MIRALAX [Concomitant]
  14. KLOR-CON [Concomitant]
  15. PROCHLORPERAZINE [Concomitant]
  16. SENNA [Concomitant]

REACTIONS (3)
  - Bacteraemia [None]
  - Arthritis infective [None]
  - Staphylococcus test positive [None]
